FAERS Safety Report 9281793 (Version 2)
Quarter: 2013Q4

REPORT INFORMATION
  Report Type: Spontaneous
  Country: US (occurrence: US)
  Receive Date: 20130510
  Receipt Date: 20131016
  Transmission Date: 20140711
  Serious: Yes (Hospitalization)
  Sender: FDA-Public Use
  Company Number: US-B.I. PHARMACEUTICALS,INC./RIDGEFIELD-2013-BI-12711BP

PATIENT
  Age: 56 Year
  Sex: Male
  Weight: 91.63 kg

DRUGS (10)
  1. PRADAXA [Suspect]
     Indication: ANTICOAGULANT THERAPY
     Dates: start: 20120208, end: 20120327
  2. PRADAXA [Suspect]
     Indication: ATRIAL FIBRILLATION
  3. ASPIRIN [Suspect]
     Indication: CORONARY ARTERY DISEASE
     Dosage: 81 MG
     Dates: start: 20110223
  4. ASPIRIN [Suspect]
     Indication: ATRIAL FIBRILLATION
  5. PLAVIX [Suspect]
     Indication: CORONARY ARTERY DISEASE
     Dosage: 75 MG
     Dates: start: 20110223
  6. PLAVIX [Suspect]
     Indication: ATRIAL FIBRILLATION
  7. CARVEDILOL [Concomitant]
     Dosage: 125 MG
     Dates: start: 20110223
  8. PANTOPRAZOLE SODIUM [Concomitant]
     Dates: start: 20110223
  9. SOTALOL [Concomitant]
     Dates: start: 20110223
  10. PRAVASTATIN SODIUM [Concomitant]
     Dates: start: 20110223

REACTIONS (1)
  - Gastrointestinal haemorrhage [Recovered/Resolved]
